FAERS Safety Report 11062140 (Version 1)
Quarter: 2015Q2

REPORT INFORMATION
  Report Type: Spontaneous
  Country: US (occurrence: US)
  Receive Date: 20150424
  Receipt Date: 20150424
  Transmission Date: 20150821
  Serious: Yes (Hospitalization, Disabling)
  Sender: FDA-Public Use
  Company Number: US-ALKERMES INC.-ALK-2014-002992

PATIENT

DRUGS (4)
  1. SIMVASTATIN. [Concomitant]
     Active Substance: SIMVASTATIN
     Indication: PRODUCT USED FOR UNKNOWN INDICATION
     Dosage: 20 MG, QD
     Route: 048
     Dates: start: 2012
  2. VIVITROL [Suspect]
     Active Substance: NALTREXONE
     Indication: DRUG DEPENDENCE
     Dosage: 380 MG, QMO
     Route: 030
     Dates: start: 20140505, end: 20140505
  3. BYSTOLIC [Concomitant]
     Active Substance: NEBIVOLOL HYDROCHLORIDE
     Indication: HYPERTENSION
     Dosage: 20 MG, QD
     Route: 048
     Dates: start: 2012
  4. SUBOXONE [Concomitant]
     Active Substance: BUPRENORPHINE HYDROCHLORIDE\NALOXONE HYDROCHLORIDE
     Indication: PRODUCT USED FOR UNKNOWN INDICATION
     Dosage: UNK
     Dates: end: 201404

REACTIONS (15)
  - Drug withdrawal syndrome [Unknown]
  - Restlessness [Recovered/Resolved]
  - Blood pressure increased [Recovered/Resolved]
  - Asthenia [Recovered/Resolved]
  - Anxiety disorder [Recovered/Resolved]
  - Drug abuse [Recovered/Resolved]
  - Nausea [Recovered/Resolved]
  - Vomiting [Recovered/Resolved]
  - Tremor [Recovered/Resolved]
  - Diarrhoea [Recovered/Resolved]
  - Decreased appetite [Recovered/Resolved]
  - Dehydration [Recovered/Resolved]
  - Urticaria [Recovered/Resolved]
  - Malaise [Unknown]
  - Drug dependence [Unknown]

NARRATIVE: CASE EVENT DATE: 201405
